FAERS Safety Report 9760386 (Version 2)
Quarter: 2013Q4

REPORT INFORMATION
  Report Type: Spontaneous
  Country: US (occurrence: US)
  Receive Date: 20131216
  Receipt Date: 20131216
  Transmission Date: 20140711
  Serious: No
  Sender: FDA-Public Use
  Company Number: US-GILEAD-2010-0029591

PATIENT
  Sex: Female
  Weight: 127.1 kg

DRUGS (11)
  1. LETAIRIS [Suspect]
     Indication: PULMONARY ARTERIAL HYPERTENSION
     Route: 048
     Dates: start: 20100510, end: 20100601
  2. BONIVA [Concomitant]
  3. CALTRATE + D [Concomitant]
  4. LASIX [Concomitant]
  5. TYLENOL [Concomitant]
  6. METOPROLOL [Concomitant]
  7. SYNTHROID [Concomitant]
  8. FLECAINIDE ACETATE [Concomitant]
  9. REVATIO [Concomitant]
  10. LISINOPRIL [Concomitant]
  11. VITAMIN C [Concomitant]

REACTIONS (3)
  - Dizziness [Unknown]
  - Local swelling [Unknown]
  - Sinusitis [Unknown]
